FAERS Safety Report 5042228-6 (Version None)
Quarter: 2006Q2

REPORT INFORMATION
  Report Type: 
  Country: None (occurrence: None)
  Receive Date: 20060601
  Receipt Date: 20060306
  Transmission Date: 20061013
  Serious: No
  Sender: FDA-Public Use
  Company Number: 2006PV009777

PATIENT
  Age: 58 Year
  Sex: Female
  Weight: 108.4097 kg

DRUGS (6)
  1. BYETTA [Suspect]
     Indication: DIABETES MELLITUS NON-INSULIN-DEPENDENT
     Dosage: SEE IMAGE
     Route: 058
     Dates: start: 20050907, end: 20050927
  2. BYETTA [Suspect]
     Indication: DIABETES MELLITUS NON-INSULIN-DEPENDENT
     Dosage: SEE IMAGE
     Route: 058
     Dates: start: 20050928
  3. METFORMIN [Concomitant]
  4. ENALAPRIL MALEATE [Concomitant]
  5. LITHIUM CARBONATE [Concomitant]
  6. SYNTHROID [Concomitant]

REACTIONS (6)
  - CONSTIPATION [None]
  - DECREASED APPETITE [None]
  - ENERGY INCREASED [None]
  - HAEMATOCHEZIA [None]
  - THERAPEUTIC RESPONSE UNEXPECTED [None]
  - WEIGHT DECREASED [None]
